FAERS Safety Report 20113664 (Version 1)
Quarter: 2021Q4

REPORT INFORMATION
  Report Type: Spontaneous
  Country: FR (occurrence: FR)
  Receive Date: 20211125
  Receipt Date: 20211125
  Transmission Date: 20220303
  Serious: Yes (Other)
  Sender: FDA-Public Use
  Company Number: FR-009507513-2111FRA007461

PATIENT
  Sex: Female

DRUGS (2)
  1. KEYTRUDA [Suspect]
     Active Substance: PEMBROLIZUMAB
     Indication: Renal cancer
  2. AXITINIB [Suspect]
     Active Substance: AXITINIB
     Indication: Renal cancer

REACTIONS (3)
  - Hepatotoxicity [Unknown]
  - Palmar-plantar erythrodysaesthesia syndrome [Unknown]
  - Thyroid disorder [Unknown]
